FAERS Safety Report 8215365-2 (Version None)
Quarter: 2012Q1

REPORT INFORMATION
  Report Type: 
  Country: None (occurrence: None)
  Receive Date: 20120316
  Receipt Date: 20120314
  Transmission Date: 20120608
  Serious: Yes (Other)
  Sender: FDA-Public Use
  Company Number: CH-PFIZER INC-2012010092

PATIENT
  Age: 54 Year
  Sex: Female
  Weight: 56 kg

DRUGS (5)
  1. LYRICA [Suspect]
     Indication: NEURALGIA
     Dosage: 150 MG, 2X/DAY
     Route: 048
     Dates: start: 20100515, end: 20101130
  2. IRFEN [Concomitant]
     Dosage: 600 MG, 2X/DAY
     Route: 048
     Dates: start: 20101105
  3. DICLOFENAC SODIUM [Concomitant]
     Dosage: 50 MG, 2X/DAY
     Route: 048
     Dates: start: 20110519
  4. LYRICA [Suspect]
     Dosage: 50 MG, 2X/DAY
     Route: 048
  5. DURAGESIC-100 [Concomitant]
     Dosage: EVERY THREE DAYS
     Route: 003
     Dates: start: 20100705, end: 20100830

REACTIONS (5)
  - AGITATION [None]
  - WITHDRAWAL SYNDROME [None]
  - ANXIETY [None]
  - SLEEP DISORDER [None]
  - TREMOR [None]
